FAERS Safety Report 23851175 (Version 1)
Quarter: 2024Q2

REPORT INFORMATION
  Report Type: Spontaneous
  Country: US (occurrence: US)
  Receive Date: 20240514
  Receipt Date: 20240514
  Transmission Date: 20240716
  Serious: No
  Sender: FDA-Public Use
  Company Number: US-E2BLSMVVAL-SPO/USA/24/0006946

PATIENT
  Age: 66 Year
  Sex: Female

DRUGS (1)
  1. NICOTINE [Suspect]
     Active Substance: NICOTINE
     Indication: Ex-tobacco user
     Route: 065
     Dates: start: 20240225, end: 20240407

REACTIONS (7)
  - Rash macular [Unknown]
  - Urticaria [Unknown]
  - Skin irritation [Unknown]
  - Pruritus [Unknown]
  - Erythema [Unknown]
  - Swelling [Unknown]
  - Expired product administered [Unknown]
